FAERS Safety Report 4475390-4 (Version None)
Quarter: 2004Q4

REPORT INFORMATION
  Report Type: 
  Country: None (occurrence: None)
  Receive Date: 20041015
  Receipt Date: 20041007
  Transmission Date: 20050328
  Serious: Yes (Other)
  Sender: FDA-Public Use
  Company Number: JP-ABBOTT-04P-087-0276661-00

PATIENT
  Age: 4 Month
  Sex: Female
  Weight: 6.26 kg

DRUGS (3)
  1. SEVOFLURANE LIQUID FOR INHALATION [Suspect]
     Indication: ANAESTHESIA
     Route: 055
  2. OXYGEN [Concomitant]
     Indication: ANAESTHESIA
     Route: 055
  3. NITROUS OXIDE [Concomitant]
     Indication: ANAESTHESIA
     Route: 055

REACTIONS (5)
  - ANAESTHETIC COMPLICATION PULMONARY [None]
  - ASPIRATION [None]
  - ATELECTASIS [None]
  - OXYGEN SATURATION DECREASED [None]
  - VOMITING [None]
